FAERS Safety Report 5260973-4 (Version None)
Quarter: 2007Q1

REPORT INFORMATION
  Report Type: 
  Country: None (occurrence: None)
  Receive Date: 20070309
  Receipt Date: 20070228
  Transmission Date: 20070707
  Serious: No
  Sender: FDA-Public Use
  Company Number: 2006UW08298

PATIENT
  Sex: Female
  Weight: 72.7 kg

DRUGS (4)
  1. SEROQUEL [Suspect]
     Route: 048
     Dates: start: 20060306, end: 20061107
  2. ABILIFY [Concomitant]
  3. TRAZODONE HCL [Concomitant]
  4. CYMBALTA [Concomitant]

REACTIONS (1)
  - DIABETES MELLITUS [None]
